FAERS Safety Report 15326112 (Version 2)
Quarter: 2018Q4

REPORT INFORMATION
  Report Type: Spontaneous
  Country: US (occurrence: US)
  Receive Date: 20180828
  Receipt Date: 20181105
  Transmission Date: 20190204
  Serious: Yes (Other)
  Sender: FDA-Public Use
  Company Number: US-BAYER-2018-161377

PATIENT
  Age: 31 Year
  Sex: Female
  Weight: 45.35 kg

DRUGS (3)
  1. MIRENA [Suspect]
     Active Substance: LEVONORGESTREL
     Indication: CONTRACEPTION
     Dosage: 20 MCG/24HR, CONT
     Route: 015
     Dates: start: 20180817, end: 20180822
  2. BETADINE [Concomitant]
     Active Substance: POVIDONE-IODINE
  3. CYTOTEC [Concomitant]
     Active Substance: MISOPROSTOL
     Indication: CERVICAL DILATATION

REACTIONS (6)
  - Hypomenorrhoea [None]
  - Device dislocation [None]
  - Procedural pain [None]
  - Amenorrhoea [None]
  - Post procedural discomfort [None]
  - Menstruation irregular [None]

NARRATIVE: CASE EVENT DATE: 201808
